FAERS Safety Report 20629754 (Version 5)
Quarter: 2023Q1

REPORT INFORMATION
  Report Type: Report from Study
  Country: KR (occurrence: KR)
  Receive Date: 20220323
  Receipt Date: 20230313
  Transmission Date: 20230417
  Serious: Yes (Death, Hospitalization)
  Sender: FDA-Public Use
  Company Number: KR-ABBVIE-22K-090-4328184-00

PATIENT
  Age: 88 Year
  Sex: Male
  Weight: 60 kg

DRUGS (38)
  1. VENCLEXTA [Suspect]
     Active Substance: VENETOCLAX
     Indication: Chronic lymphocytic leukaemia
     Dosage: 20 MILLIGRAM
     Route: 048
     Dates: start: 20211127, end: 20211203
  2. VENCLEXTA [Suspect]
     Active Substance: VENETOCLAX
     Indication: Chronic lymphocytic leukaemia
     Dosage: 100 MILLIGRAM
     Route: 048
     Dates: start: 20211207, end: 20211216
  3. VENCLEXTA [Suspect]
     Active Substance: VENETOCLAX
     Indication: Chronic lymphocytic leukaemia
     Dosage: 50 MILLIGRAM
     Route: 048
     Dates: start: 20211217, end: 20211231
  4. VENCLEXTA [Suspect]
     Active Substance: VENETOCLAX
     Indication: Chronic lymphocytic leukaemia
     Dosage: 30 MILLIGRAM
     Route: 048
     Dates: start: 20220113, end: 20220120
  5. VENCLEXTA [Suspect]
     Active Substance: VENETOCLAX
     Indication: Chronic lymphocytic leukaemia
     Dosage: 50 MILLIGRAM
     Route: 048
     Dates: start: 20211204, end: 20211206
  6. VENCLEXTA [Suspect]
     Active Substance: VENETOCLAX
     Indication: Chronic lymphocytic leukaemia
     Dosage: 50 MILLIGRAM
     Route: 048
     Dates: start: 20220121, end: 20220123
  7. VENCLEXTA [Suspect]
     Active Substance: VENETOCLAX
     Indication: Chronic lymphocytic leukaemia
     Dosage: 100 MILLIGRAM
     Route: 048
     Dates: start: 20220124, end: 20220127
  8. VENCLEXTA [Suspect]
     Active Substance: VENETOCLAX
     Indication: Chronic lymphocytic leukaemia
     Dosage: 200 MILLIGRAM
     Route: 048
     Dates: start: 20220128, end: 20220203
  9. VENCLEXTA [Suspect]
     Active Substance: VENETOCLAX
     Indication: Chronic lymphocytic leukaemia
     Dosage: 400 MILLIGRAM
     Route: 048
     Dates: start: 20220204, end: 20220209
  10. VENCLEXTA [Suspect]
     Active Substance: VENETOCLAX
     Indication: Chronic lymphocytic leukaemia
     Dosage: 400 MILLIGRAM
     Route: 048
     Dates: start: 20220210, end: 20220307
  11. 100 mg Zyloric [Concomitant]
     Indication: Premedication
     Route: 048
     Dates: start: 20211127
  12. PROPRANOLOL HYDROCHLORIDE [Concomitant]
     Active Substance: PROPRANOLOL HYDROCHLORIDE
     Indication: Hypertension
     Dosage: 120 MILLIGRAM
     Route: 048
     Dates: start: 20211127, end: 20220115
  13. NORVASC [Concomitant]
     Active Substance: AMLODIPINE BESYLATE
     Indication: Hypertension
     Dosage: 5 MILLIGRAM
     Route: 048
     Dates: start: 20211127, end: 20220115
  14. PACETA [Concomitant]
     Indication: Pleural effusion
     Dosage: 1VIAL
     Route: 042
     Dates: start: 20211127
  15. AVODART [Concomitant]
     Active Substance: DUTASTERIDE
     Indication: Benign prostatic hyperplasia
     Dosage: SC 0.5,MG
     Route: 048
     Dates: start: 20211127
  16. RABEPRAZOLE SODIUM [Concomitant]
     Active Substance: RABEPRAZOLE SODIUM
     Indication: Gastrooesophageal reflux disease
     Route: 048
     Dates: start: 20211127, end: 20211207
  17. DIAZEPAM DAEWON TAB 2mg [Concomitant]
     Indication: Tremor
     Dosage: 2 MILLIGRAM
     Route: 048
     Dates: start: 20211127
  18. LEVODROPROPIZINE [Concomitant]
     Active Substance: LEVODROPROPIZINE
     Indication: Pleural effusion
     Dosage: 180 MILLIGRAM
     Route: 048
     Dates: start: 20211127
  19. ERDOSTEINE [Concomitant]
     Active Substance: ERDOSTEINE
     Indication: Pleural effusion
     Dosage: 900 MILLIGRAM
     Route: 048
     Dates: start: 20211127
  20. AMBRO [Concomitant]
     Indication: Pleural effusion
     Dosage: 3 AMPOULE
     Route: 042
     Dates: start: 20211127, end: 20211201
  21. BENZYDAMINE HYDROCHLORIDE [Concomitant]
     Active Substance: BENZYDAMINE HYDROCHLORIDE
     Indication: Product used for unknown indication
     Dosage: 15 MILLILITER
     Route: 060
     Dates: start: 20211127
  22. BARACLUDE [Concomitant]
     Active Substance: ENTECAVIR
     Indication: Antiviral prophylaxis
     Dosage: 0.5 MILLIGRAM
     Route: 048
     Dates: start: 20220113
  23. TACENOL 8HOURS ER [Concomitant]
     Indication: Premedication
     Dosage: L 8HOURS ER TAB 650 MILLIGRAM
     Route: 048
     Dates: start: 20220113, end: 20220113
  24. DEXAMETHASONE [Concomitant]
     Active Substance: DEXAMETHASONE
     Indication: Premedication
     Dosage: E CHOONGWAE INJ 5MG/ML, 1 AMPULE
     Route: 042
     Dates: start: 20220113, end: 20220113
  25. CHLORPHENIRAMINE MALEATE HUONS [Concomitant]
     Indication: Premedication
     Dosage: 1 AMPOULE
     Route: 042
     Dates: start: 20220113, end: 20220113
  26. REBAMIPIDE [Concomitant]
     Active Substance: REBAMIPIDE
     Indication: Gastrooesophageal reflux disease
     Dosage: 300 MILLIGRAM
     Route: 048
     Dates: start: 20220113
  27. SPORANOX [Concomitant]
     Active Substance: ITRACONAZOLE
     Indication: Pleural effusion
     Route: 048
     Dates: start: 20220113
  28. SODIUM BICARBONATE [Concomitant]
     Active Substance: SODIUM BICARBONATE
     Indication: Premedication
     Dosage: E DAIHAN INJ 8.4% 20ML, 2 AMPULES
     Route: 042
     Dates: start: 20220210, end: 20220210
  29. THRUPASS ODT [Concomitant]
     Indication: Benign prostatic hyperplasia
     Dosage: 8 MILLIGRAM
     Route: 060
     Dates: start: 20211127
  30. MABTHERA [Concomitant]
     Active Substance: RITUXIMAB
     Indication: Chemotherapy
     Dosage: 765 MILLIGRAM
     Route: 048
     Dates: start: 20220211
  31. MAGMIL S [Concomitant]
     Indication: Chemotherapy
     Dosage: 750 MILLIGRAM
     Route: 048
     Dates: start: 20220211
  32. Hana codeine phosphate [Concomitant]
     Indication: Pleural effusion
     Dosage: 60 MILLIGRAM
     Route: 048
     Dates: start: 20211127
  33. COLDAEWON [Concomitant]
     Indication: Pleural effusion
     Dosage: 80 MILLILITER
     Route: 048
     Dates: start: 20220305
  34. OXYCODONE HYDROCHLORIDE [Concomitant]
     Active Substance: OXYCODONE HYDROCHLORIDE
     Indication: Pleural effusion
     Route: 048
     Dates: start: 20220225
  35. FENTANYL [Concomitant]
     Active Substance: FENTANYL
     Indication: Pleural effusion
     Dosage: C D-TRANS PATCH 12MCG/H 5.25? ?
     Route: 062
     Dates: start: 20220305, end: 20220307
  36. UBACSIN [Concomitant]
     Indication: Pleural effusion
     Dosage: 8VIALS, 1.5 G
     Route: 042
     Dates: start: 20220306, end: 20220306
  37. SULFAMETHOXAZOLE\TRIMETHOPRIM [Concomitant]
     Active Substance: SULFAMETHOXAZOLE\TRIMETHOPRIM
     Indication: Pleural effusion
     Dosage: 1 TABLET
     Route: 048
     Dates: start: 20220113
  38. MINIRIN [Concomitant]
     Active Substance: DESMOPRESSIN ACETATE
     Indication: Benign prostatic hyperplasia
     Dosage: 0.1 MILLIGRAM
     Route: 048
     Dates: start: 20211127, end: 20211207

REACTIONS (2)
  - COVID-19 pneumonia [Fatal]
  - Pleural effusion [Not Recovered/Not Resolved]

NARRATIVE: CASE EVENT DATE: 20220110
